FAERS Safety Report 4873944-4 (Version None)
Quarter: 2006Q1

REPORT INFORMATION
  Report Type: 
  Country: None (occurrence: None)
  Receive Date: 20060104
  Receipt Date: 20051219
  Transmission Date: 20060701
  Serious: Yes (Other)
  Sender: FDA-Public Use
  Company Number: 2005159226

PATIENT
  Age: 69 Year
  Sex: Female
  Weight: 61.2356 kg

DRUGS (2)
  1. DETROL LA [Suspect]
     Indication: URGE INCONTINENCE
     Dosage: (4 MG) , ORAL
     Route: 048
     Dates: start: 20030101
  2. VITAMINS (VITAMINS) [Concomitant]

REACTIONS (3)
  - CATARACT OPERATION [None]
  - URINARY TRACT INFECTION [None]
  - VISION BLURRED [None]
